FAERS Safety Report 13221865 (Version 1)
Quarter: 2017Q1

REPORT INFORMATION
  Report Type: Report from Study
  Country: US (occurrence: US)
  Receive Date: 20170211
  Receipt Date: 20170211
  Transmission Date: 20170428
  Serious: Yes (Death)
  Sender: FDA-Public Use
  Company Number: US-SUNOVION-2017SUN000534

PATIENT
  Sex: Male

DRUGS (1)
  1. ARCAPTA NEOHALER [Suspect]
     Active Substance: INDACATEROL MALEATE
     Indication: PRODUCT USED FOR UNKNOWN INDICATION
     Route: 065

REACTIONS (4)
  - Cardiac failure [Fatal]
  - Dyspnoea [Unknown]
  - Orthopnoea [Unknown]
  - Oedema peripheral [Unknown]
